FAERS Safety Report 4887581-9 (Version None)
Quarter: 2006Q1

REPORT INFORMATION
  Report Type: 
  Country: None (occurrence: None)
  Receive Date: 20060119
  Receipt Date: 20060119
  Transmission Date: 20060701
  Serious: Yes (Hospitalization)
  Sender: FDA-Public Use
  Company Number: None

PATIENT
  Age: 60 Year
  Sex: Female

DRUGS (1)
  1. LITHIUM CARBONATE [Suspect]
     Indication: BIPOLAR DISORDER
     Dosage: 600 MG BID (PO)
     Route: 048
     Dates: start: 19960101, end: 20050101

REACTIONS (4)
  - DYSGEUSIA [None]
  - FATIGUE [None]
  - NAUSEA [None]
  - THERAPEUTIC AGENT TOXICITY [None]
